FAERS Safety Report 24906227 (Version 3)
Quarter: 2025Q1

REPORT INFORMATION
  Report Type: Spontaneous
  Country: US (occurrence: US)
  Receive Date: 20250130
  Receipt Date: 20250212
  Transmission Date: 20250408
  Serious: Yes (Hospitalization, Other)
  Sender: IPSEN BIOPHARMACEUTICALS, INC.
  Company Number: US-IPSEN Group, Research and Development-2025-01245

PATIENT
  Age: 58 Year
  Sex: Female

DRUGS (23)
  1. DYSPORT [Suspect]
     Active Substance: ABOBOTULINUMTOXINA
     Indication: Dystonia
     Route: 030
     Dates: start: 20220322, end: 20220322
  2. DYSPORT [Suspect]
     Active Substance: ABOBOTULINUMTOXINA
     Indication: Off label use
     Route: 030
     Dates: start: 20220921, end: 20220921
  3. DYSPORT [Suspect]
     Active Substance: ABOBOTULINUMTOXINA
     Indication: Muscle spasticity
     Route: 030
     Dates: start: 202403, end: 202403
  4. DYSPORT [Suspect]
     Active Substance: ABOBOTULINUMTOXINA
     Route: 030
     Dates: start: 20241029, end: 20241029
  5. ASPIRIN [Concomitant]
     Active Substance: ASPIRIN
  6. B COMPLEX PLUS C [Concomitant]
  7. CYMBALTA [Concomitant]
     Active Substance: DULOXETINE HYDROCHLORIDE
  8. FISH OIL [Concomitant]
     Active Substance: FISH OIL
  9. CALCIUM [Concomitant]
     Active Substance: CALCIUM
  10. MAGNESIUM [Concomitant]
     Active Substance: MAGNESIUM
  11. ZINC [Concomitant]
     Active Substance: ZINC
  12. VITAMIN D NOS [Concomitant]
     Active Substance: CHOLECALCIFEROL\ERGOCALCIFEROL
  13. FLONASE [Concomitant]
     Active Substance: FLUTICASONE PROPIONATE
  14. GABAPENTIN [Concomitant]
     Active Substance: GABAPENTIN
  15. LISINOPRIL [Concomitant]
     Active Substance: LISINOPRIL
  16. LOTEMAX [Concomitant]
     Active Substance: LOTEPREDNOL ETABONATE
  17. LYRICA [Concomitant]
     Active Substance: PREGABALIN
  18. LYSINE [Concomitant]
     Active Substance: LYSINE
  19. MODAFINIL [Concomitant]
     Active Substance: MODAFINIL
  20. OCREVUS [Concomitant]
     Active Substance: OCRELIZUMAB
     Route: 050
  21. HYDROXYCHLOROQUINE DIPHOSPHATE [Concomitant]
     Active Substance: HYDROXYCHLOROQUINE DIPHOSPHATE
  22. RESTASIS [Concomitant]
     Active Substance: CYCLOSPORINE
  23. VITAMIN D3 [Concomitant]
     Active Substance: CHOLECALCIFEROL

REACTIONS (6)
  - Neuromuscular toxicity [Unknown]
  - Stress [Unknown]
  - Pain [Unknown]
  - Hypokinesia [Recovering/Resolving]
  - Drug ineffective [Unknown]
  - Off label use [Unknown]

NARRATIVE: CASE EVENT DATE: 20220322
